FAERS Safety Report 5547037-7 (Version None)
Quarter: 2007Q4

REPORT INFORMATION
  Report Type: 
  Country: None (occurrence: None)
  Receive Date: 20071211
  Receipt Date: 20071129
  Transmission Date: 20080405
  Serious: Yes (Other)
  Sender: FDA-Public Use
  Company Number: DE-PFIZER INC-2007100737

PATIENT
  Age: 76 Year
  Sex: Female
  Weight: 63 kg

DRUGS (5)
  1. AROMASIN [Suspect]
     Indication: BREAST CANCER
     Route: 048
     Dates: start: 20071112, end: 20071119
  2. LYMPHADEN [Concomitant]
  3. LORZAAR [Concomitant]
  4. METOPROLOL [Concomitant]
  5. TAMOXIFEN CITRATE [Concomitant]
     Dates: start: 20040819, end: 20071111

REACTIONS (1)
  - BLOOD PRESSURE INADEQUATELY CONTROLLED [None]
